FAERS Safety Report 10023709 (Version 2)
Quarter: 2014Q2

REPORT INFORMATION
  Report Type: Spontaneous
  Country: ES (occurrence: ES)
  Receive Date: 20140320
  Receipt Date: 20140413
  Transmission Date: 20141212
  Serious: Yes (Other)
  Sender: FDA-Public Use
  Company Number: ES-ROCHE-1368801

PATIENT
  Age: 45 Year
  Sex: 0

DRUGS (1)
  1. ALTEPLASE [Suspect]
     Indication: ISCHAEMIC STROKE
     Route: 042

REACTIONS (2)
  - NIH stroke scale score increased [Unknown]
  - Drug ineffective [Unknown]
